FAERS Safety Report 20803368 (Version 1)
Quarter: 2022Q2

REPORT INFORMATION
  Report Type: Spontaneous
  Country: VE (occurrence: VE)
  Receive Date: 20220509
  Receipt Date: 20220509
  Transmission Date: 20220721
  Serious: Yes (Other)
  Sender: FDA-Public Use
  Company Number: VE-NOVARTISPH-NVSC2022VE105563

PATIENT
  Sex: Male

DRUGS (1)
  1. GLIVEC [Suspect]
     Active Substance: IMATINIB MESYLATE
     Indication: Chronic myeloid leukaemia
     Dosage: 400 MG (4 X 100 MG) (STOP DATE 20 FEB)
     Route: 065

REACTIONS (4)
  - Pneumothorax [Unknown]
  - Dyspnoea [Unknown]
  - Fatigue [Unknown]
  - Arterial disorder [Unknown]
